FAERS Safety Report 8296603-7 (Version None)
Quarter: 2012Q2

REPORT INFORMATION
  Report Type: 
  Country: None (occurrence: None)
  Receive Date: 20120418
  Receipt Date: 20120418
  Transmission Date: 20120825
  Serious: Yes (Other)
  Sender: FDA-Public Use
  Company Number: None

PATIENT
  Age: 82 Year
  Sex: Female

DRUGS (1)
  1. VIGAMOX [Suspect]
     Indication: PREOPERATIVE CARE
     Dosage: 1 DROP
     Route: 047
     Dates: start: 20120411, end: 20120411

REACTIONS (3)
  - EYE IRRITATION [None]
  - OCULAR HYPERAEMIA [None]
  - EYE PRURITUS [None]
